FAERS Safety Report 11329796 (Version 1)
Quarter: 2015Q3

REPORT INFORMATION
  Report Type: Spontaneous
  Country: US (occurrence: None)
  Receive Date: 20150730
  Receipt Date: 20150730
  Transmission Date: 20151125
  Serious: No
  Sender: FDA-Public Use
  Company Number: None

PATIENT
  Age: 53 Year
  Sex: Male

DRUGS (14)
  1. TACROLIMUS. [Concomitant]
     Active Substance: TACROLIMUS
  2. INSULIN GLARGINE [Suspect]
     Active Substance: INSULIN GLARGINE
     Route: 058
  3. AMLODIPINE [Concomitant]
     Active Substance: AMLODIPINE BESYLATE
  4. LANSOPRAZOLE. [Concomitant]
     Active Substance: LANSOPRAZOLE
  5. LACTULOSE. [Concomitant]
     Active Substance: LACTULOSE
  6. BUMETANIDE. [Concomitant]
     Active Substance: BUMETANIDE
  7. FISH OIL [Concomitant]
     Active Substance: FISH OIL
  8. HYDRALAZINE [Concomitant]
     Active Substance: HYDRALAZINE HYDROCHLORIDE
  9. METOPROLOL [Concomitant]
     Active Substance: METOPROLOL
  10. MAGNESIUM OXIDE. [Concomitant]
     Active Substance: MAGNESIUM OXIDE
  11. MULTIVITAMIN [Concomitant]
     Active Substance: VITAMINS
  12. POTASSIUM CHLORIDE. [Concomitant]
     Active Substance: POTASSIUM CHLORIDE
  13. INSULIN [Suspect]
     Active Substance: INSULIN NOS
     Indication: HYPERGLYCAEMIA
     Route: 058
  14. QUETIAPINE [Concomitant]
     Active Substance: QUETIAPINE

REACTIONS (1)
  - Blood glucose decreased [None]

NARRATIVE: CASE EVENT DATE: 20150217
